FAERS Safety Report 5091440-9 (Version None)
Quarter: 2006Q3

REPORT INFORMATION
  Report Type: 
  Country: None (occurrence: None)
  Receive Date: 20060824
  Receipt Date: 20060809
  Transmission Date: 20061208
  Serious: Yes (Congenital Anomaly, Other)
  Sender: FDA-Public Use
  Company Number: 007998

PATIENT
  Age: 1 Day
  Sex: Male
  Weight: 3 kg

DRUGS (1)
  1. CLARAVIS [Suspect]
     Route: 064
     Dates: start: 20051025, end: 20051110

REACTIONS (11)
  - ANOTIA [None]
  - CEREBELLAR HYPOPLASIA [None]
  - DANDY-WALKER SYNDROME [None]
  - DRUG EXPOSURE DURING PREGNANCY [None]
  - DYSKINESIA [None]
  - INTERRUPTION OF AORTIC ARCH [None]
  - MITRAL VALVE HYPOPLASIA [None]
  - SOLITARY KIDNEY [None]
  - TERATOGENICITY [None]
  - VENTRICULAR INTERNAL DIAMETER ABNORMAL [None]
  - VENTRICULAR SEPTAL DEFECT [None]
